FAERS Safety Report 5801679-X (Version None)
Quarter: 2008Q3

REPORT INFORMATION
  Report Type: 
  Country: None (occurrence: None)
  Receive Date: 20080707
  Receipt Date: 20080630
  Transmission Date: 20090109
  Serious: Yes (Other)
  Sender: FDA-Public Use
  Company Number: B0524228A

PATIENT
  Age: 40 Year
  Sex: Female

DRUGS (4)
  1. LAMIVUDINE [Suspect]
     Indication: ANTIRETROVIRAL THERAPY
     Dosage: 300MG PER DAY
     Route: 048
     Dates: start: 20071212
  2. STAVUDINE [Suspect]
     Indication: ANTIRETROVIRAL THERAPY
     Dosage: 60MG PER DAY
     Route: 048
     Dates: start: 20071212
  3. EFAVIRENZ [Suspect]
     Indication: ANTIRETROVIRAL THERAPY
     Dosage: 600MG PER DAY
     Route: 048
     Dates: start: 20071212
  4. RIFAFOUR [Concomitant]
     Indication: TUBERCULOSIS
     Dates: start: 20071107

REACTIONS (5)
  - ASPHYXIA [None]
  - DRUG EXPOSURE DURING PREGNANCY [None]
  - PREMATURE LABOUR [None]
  - RESPIRATORY DISTRESS [None]
  - STILLBIRTH [None]
